FAERS Safety Report 9767864 (Version 2)
Quarter: 2013Q4

REPORT INFORMATION
  Report Type: Spontaneous
  Country: US (occurrence: None)
  Receive Date: 20131213
  Receipt Date: 20131227
  Transmission Date: 20140711
  Serious: Yes (Hospitalization, Other)
  Sender: FDA-Public Use
  Company Number: ADR-2013-02269

PATIENT
  Age: 56 Year
  Sex: Female

DRUGS (1)
  1. BACLOFEN [Suspect]
     Indication: MUSCLE SPASTICITY

REACTIONS (5)
  - Muscle spasticity [None]
  - Condition aggravated [None]
  - Movement disorder [None]
  - Dystonia [None]
  - Urinary tract infection [None]
